FAERS Safety Report 25320321 (Version 2)
Quarter: 2025Q2

REPORT INFORMATION
  Report Type: Spontaneous
  Country: US (occurrence: US)
  Receive Date: 20250515
  Receipt Date: 20250611
  Transmission Date: 20250716
  Serious: No
  Sender: PFIZER
  Company Number: US-PFIZER INC-202400078794

PATIENT
  Age: 28 Year
  Sex: Male
  Weight: 56.689 kg

DRUGS (1)
  1. CIBINQO [Suspect]
     Active Substance: ABROCITINIB
     Indication: Eczema
     Route: 048
     Dates: start: 20240204

REACTIONS (1)
  - Brain fog [Recovered/Resolved]
